FAERS Safety Report 7815967-9 (Version None)
Quarter: 2011Q4

REPORT INFORMATION
  Report Type: 
  Country: None (occurrence: None)
  Receive Date: 20111014
  Receipt Date: 20111006
  Transmission Date: 20120403
  Serious: Yes (Hospitalization)
  Sender: FDA-Public Use
  Company Number: US-MERCK-1109USA01910

PATIENT
  Age: 69 Year
  Sex: Female

DRUGS (5)
  1. FOSAMAX [Suspect]
     Route: 048
     Dates: start: 20060518, end: 20080111
  2. FOSAMAX [Suspect]
     Indication: BONE LOSS
     Route: 048
     Dates: start: 20001010, end: 20060518
  3. FOSAMAX [Suspect]
     Route: 048
     Dates: start: 20060518, end: 20080111
  4. FOSAMAX [Suspect]
     Indication: OSTEOPOROSIS
     Route: 048
     Dates: start: 20001010, end: 20060518
  5. ALENDRONATE SODIUM [Suspect]
     Indication: OSTEOPOROSIS
     Route: 048
     Dates: start: 20080328, end: 20080617

REACTIONS (11)
  - URTICARIA [None]
  - RESPIRATORY DISORDER [None]
  - STRESS [None]
  - CARDIAC DISORDER [None]
  - FEMUR FRACTURE [None]
  - ADVERSE DRUG REACTION [None]
  - FALL [None]
  - SKIN ULCER [None]
  - VEIN DISORDER [None]
  - TOOTH DISORDER [None]
  - DEPRESSION [None]
